FAERS Safety Report 8426000-2 (Version None)
Quarter: 2012Q2

REPORT INFORMATION
  Report Type: 
  Country: None (occurrence: None)
  Receive Date: 20120611
  Receipt Date: 20120530
  Transmission Date: 20120825
  Serious: Yes (Death)
  Sender: FDA-Public Use
  Company Number: US-MYLANLABS-2009S1007066

PATIENT
  Age: 47 Year
  Sex: Female

DRUGS (6)
  1. PERCOCET [Concomitant]
     Dosage: 10MG/325MG
  2. PHENERGAN [Concomitant]
  3. CYCLOBENZAPRINE [Suspect]
  4. FENTANYL-100 [Suspect]
     Indication: BACK PAIN
     Route: 062
     Dates: start: 20070419, end: 20070423
  5. LIBRAX [Concomitant]
  6. VALIUM [Concomitant]

REACTIONS (1)
  - TOXICITY TO VARIOUS AGENTS [None]
